FAERS Safety Report 4634348-2 (Version None)
Quarter: 2005Q2

REPORT INFORMATION
  Report Type: 
  Country: None (occurrence: None)
  Receive Date: 20050411
  Receipt Date: 20050401
  Transmission Date: 20051028
  Serious: Yes (Hospitalization)
  Sender: FDA-Public Use
  Company Number: 2005AD000021

PATIENT
  Age: 37 Year
  Sex: Female

DRUGS (2)
  1. KEFLEX [Suspect]
     Indication: GINGIVITIS
     Dosage: 1 GM; PO
     Route: 048
     Dates: start: 20050305, end: 20050305
  2. LOXOPROFEN (LOXOPROFEN) [Suspect]
     Dosage: PO
     Route: 048
     Dates: start: 20050305, end: 20050305

REACTIONS (3)
  - ANAPHYLACTIC SHOCK [None]
  - FALL [None]
  - HOT FLUSH [None]
